FAERS Safety Report 7352172-7 (Version None)
Quarter: 2011Q1

REPORT INFORMATION
  Report Type: 
  Country: None (occurrence: None)
  Receive Date: 20110315
  Receipt Date: 20100721
  Transmission Date: 20110831
  Serious: Yes (Hospitalization, Other)
  Sender: FDA-Public Use
  Company Number: US-BAYER-201016358NA

PATIENT
  Sex: Female
  Weight: 126.8 kg

DRUGS (5)
  1. YASMIN [Suspect]
     Dosage: UNK UNK, QD
     Route: 048
     Dates: start: 20070201, end: 20070801
  2. SYNTHROID [Concomitant]
     Dosage: 75 MCG/24HR, QD
     Route: 001
  3. IRON SULFATETHIAMIN COMPOUND TAB [Concomitant]
     Dosage: UNK UNK, BID
     Route: 001
  4. OCELLA [Suspect]
     Dosage: UNK UNK, QD
     Route: 048
     Dates: start: 20070201, end: 20070801
  5. YAZ [Suspect]
     Dosage: UNK UNK, QD
     Route: 048
     Dates: start: 20070201, end: 20070801

REACTIONS (2)
  - PULMONARY EMBOLISM [None]
  - MENTAL DISORDER [None]
